FAERS Safety Report 5378163-3 (Version None)
Quarter: 2007Q3

REPORT INFORMATION
  Report Type: 
  Country: None (occurrence: None)
  Receive Date: 20070705
  Receipt Date: 20070629
  Transmission Date: 20080115
  Serious: Yes (Hospitalization)
  Sender: FDA-Public Use
  Company Number: PHEH2007US09454

PATIENT
  Sex: Female

DRUGS (2)
  1. TEKTURNA [Suspect]
     Indication: HYPERTENSION
     Dosage: 450 MG, QD
     Route: 048
  2. NORVASC [Concomitant]

REACTIONS (2)
  - DIALYSIS [None]
  - RENAL FAILURE ACUTE [None]
